FAERS Safety Report 5357240-7 (Version None)
Quarter: 2007Q2

REPORT INFORMATION
  Report Type: 
  Country: None (occurrence: None)
  Receive Date: 20070612
  Receipt Date: 20070612
  Transmission Date: 20071010
  Serious: No
  Sender: FDA-Public Use
  Company Number: None

PATIENT
  Sex: Female
  Weight: 94.8018 kg

DRUGS (1)
  1. METHERGINE [Suspect]
     Indication: MIGRAINE
     Dosage: ONE 0.2 MG TABLET DAILY PO
     Route: 048
     Dates: start: 20070531, end: 20070604

REACTIONS (3)
  - HYPOAESTHESIA [None]
  - NAIL BED TENDERNESS [None]
  - VASOCONSTRICTION [None]
